FAERS Safety Report 8143937-2 (Version None)
Quarter: 2012Q1

REPORT INFORMATION
  Report Type: 
  Country: None (occurrence: None)
  Receive Date: 20120217
  Receipt Date: 20120207
  Transmission Date: 20120608
  Serious: Yes (Hospitalization, Other)
  Sender: FDA-Public Use
  Company Number: NL-JNJFOC-20120112808

PATIENT
  Age: 25 Year
  Sex: Male
  Weight: 50 kg

DRUGS (8)
  1. REMICADE [Suspect]
     Route: 042
     Dates: start: 20110718
  2. REMICADE [Suspect]
     Route: 042
     Dates: start: 20110620
  3. TEMAZEPAM [Concomitant]
  4. REMICADE [Suspect]
     Indication: COLITIS ULCERATIVE
     Route: 042
     Dates: start: 20110530
  5. REMICADE [Suspect]
     Route: 042
     Dates: start: 20110823
  6. FLUTICASONE PROPIONATE/SALMETEROL [Concomitant]
  7. CALCIUM CARBONATE [Concomitant]
  8. TRAMADOL HCL [Concomitant]

REACTIONS (2)
  - PROCEDURAL SITE REACTION [None]
  - ABDOMINAL PAIN [None]
